FAERS Safety Report 24017433 (Version 1)
Quarter: 2024Q2

REPORT INFORMATION
  Report Type: Other
  Country: AU (occurrence: AU)
  Receive Date: 20240627
  Receipt Date: 20240627
  Transmission Date: 20240715
  Serious: Yes (Other)
  Sender: FDA-Public Use
  Company Number: AU-LUPIN PHARMACEUTICALS INC.-2024-05526

PATIENT
  Sex: Female

DRUGS (17)
  1. AMLODIPINE [Suspect]
     Active Substance: AMLODIPINE BESYLATE
     Indication: Product used for unknown indication
     Dosage: 10 MG
     Route: 065
  2. PANTOPRAZOLE [Suspect]
     Active Substance: PANTOPRAZOLE
     Indication: Product used for unknown indication
     Dosage: 40 MG
     Route: 065
  3. VALACYCLOVIR HYDROCHLORIDE [Suspect]
     Active Substance: VALACYCLOVIR HYDROCHLORIDE
     Indication: Product used for unknown indication
     Dosage: 500 MG
     Route: 065
  4. THYROXINE [Suspect]
     Active Substance: LEVOTHYROXINE
     Indication: Product used for unknown indication
     Dosage: 150 MICROGRAM, QD
     Route: 065
  5. THYROXINE [Suspect]
     Active Substance: LEVOTHYROXINE
     Dosage: 75 MICROGRAM, QD
     Route: 065
  6. SULFAMETHOXAZOLE\TRIMETHOPRIM [Suspect]
     Active Substance: SULFAMETHOXAZOLE\TRIMETHOPRIM
     Indication: Product used for unknown indication
     Dosage: UNK, QD
     Route: 065
  7. ALEMTUZUMAB [Suspect]
     Active Substance: ALEMTUZUMAB
     Indication: Product used for unknown indication
     Dosage: 30 MILLIGRAM, QD
     Route: 065
  8. ANAKINRA [Suspect]
     Active Substance: ANAKINRA
     Indication: Product used for unknown indication
     Dosage: UNK
     Route: 065
  9. CYCLOSPORINE [Suspect]
     Active Substance: CYCLOSPORINE
     Indication: Haemophagocytic lymphohistiocytosis
     Dosage: 125 MG, BID
     Route: 065
  10. CYCLOSPORINE [Suspect]
     Active Substance: CYCLOSPORINE
     Indication: Macrophage activation
  11. CYCLOSPORINE [Suspect]
     Active Substance: CYCLOSPORINE
     Indication: Still^s disease
  12. DEXAMETHASONE [Suspect]
     Active Substance: DEXAMETHASONE
     Indication: Haemophagocytic lymphohistiocytosis
     Dosage: 8 MG, QD
     Route: 065
  13. DEXAMETHASONE [Suspect]
     Active Substance: DEXAMETHASONE
     Indication: Macrophage activation
  14. DEXAMETHASONE [Suspect]
     Active Substance: DEXAMETHASONE
     Indication: Still^s disease
  15. ENTECAVIR [Suspect]
     Active Substance: ENTECAVIR
     Indication: Product used for unknown indication
     Dosage: 0.5 MG
     Route: 065
  16. ETOPOSIDE [Suspect]
     Active Substance: ETOPOSIDE
     Indication: Product used for unknown indication
     Dosage: UNK
     Route: 065
  17. TOCILIZUMAB [Suspect]
     Active Substance: TOCILIZUMAB
     Indication: Product used for unknown indication
     Dosage: UNK, QW
     Route: 058

REACTIONS (2)
  - Hepatitis B [Unknown]
  - Off label use [Unknown]
